FAERS Safety Report 12488133 (Version 1)
Quarter: 2016Q2

REPORT INFORMATION
  Report Type: Spontaneous
  Country: US (occurrence: US)
  Receive Date: 20160622
  Receipt Date: 20160622
  Transmission Date: 20160815
  Serious: Yes (Other)
  Sender: FDA-Public Use
  Company Number: US-PFIZER INC-2016300531

PATIENT
  Age: 72 Year
  Sex: Male

DRUGS (2)
  1. SUTENT [Suspect]
     Active Substance: SUNITINIB MALATE
     Dosage: 50 MG DAILY CYCLIC (4 WEEKS ON AND 2 WEEKS OFF)
     Dates: end: 201510
  2. SUTENT [Suspect]
     Active Substance: SUNITINIB MALATE
     Dosage: 35 MG DAILY CYCLIC (4 WEEKS ON AND 2 WEEKS OFF)
     Dates: start: 201511

REACTIONS (13)
  - Palmar-plantar erythrodysaesthesia syndrome [Recovered/Resolved]
  - Diarrhoea [Recovered/Resolved]
  - Hypothyroidism [Recovered/Resolved]
  - Nausea [Recovered/Resolved]
  - Gingival disorder [Unknown]
  - Dysgeusia [Recovered/Resolved]
  - Haemoptysis [Unknown]
  - Pain in extremity [Recovered/Resolved]
  - Feeling abnormal [Recovered/Resolved]
  - Myalgia [Not Recovered/Not Resolved]
  - Peripheral sensory neuropathy [Recovered/Resolved]
  - Hypertension [Unknown]
  - Dyspepsia [Not Recovered/Not Resolved]
